FAERS Safety Report 22246845 (Version 1)
Quarter: 2023Q2

REPORT INFORMATION
  Report Type: Spontaneous
  Country: GB (occurrence: GB)
  Receive Date: 20230424
  Receipt Date: 20230424
  Transmission Date: 20230722
  Serious: Yes (Life-Threatening, Hospitalization, Disabling, Other)
  Sender: FDA-Public Use
  Company Number: GB-LUNDBECK-DKLU3060629

PATIENT
  Sex: Male
  Weight: 85 kg

DRUGS (1)
  1. ESCITALOPRAM OXALATE [Suspect]
     Active Substance: ESCITALOPRAM OXALATE
     Indication: Product used for unknown indication
     Dosage: 5 MG
     Dates: start: 20201016, end: 20210607

REACTIONS (6)
  - Withdrawal syndrome [Not Recovered/Not Resolved]
  - Loss of employment [Not Recovered/Not Resolved]
  - Family stress [Not Recovered/Not Resolved]
  - Medication error [Unknown]
  - Treatment noncompliance [Unknown]
  - Suicide attempt [Not Recovered/Not Resolved]

NARRATIVE: CASE EVENT DATE: 20210607
